FAERS Safety Report 15222972 (Version 1)
Quarter: 2018Q3

REPORT INFORMATION
  Report Type: Spontaneous
  Country: US (occurrence: US)
  Receive Date: 20180705
  Receipt Date: 20180705
  Transmission Date: 20181010
  Serious: Yes (Disabling)
  Sender: FDA-Public Use
  Company Number: None

PATIENT
  Age: 25 Year
  Sex: Male
  Weight: 99 kg

DRUGS (2)
  1. ACCUTANE [Suspect]
     Active Substance: ISOTRETINOIN
     Indication: ACNE CYSTIC
     Dosage: ?          QUANTITY:1 TABLET(S);?
     Route: 048
  2. MAN MULTIVITAMIN [Concomitant]

REACTIONS (6)
  - Panic attack [None]
  - Anxiety [None]
  - Insurance issue [None]
  - Hyperhidrosis [None]
  - Impaired work ability [None]
  - Treatment noncompliance [None]

NARRATIVE: CASE EVENT DATE: 20180705
